FAERS Safety Report 7062552-5 (Version None)
Quarter: 2010Q4

REPORT INFORMATION
  Report Type: 
  Country: None (occurrence: None)
  Receive Date: 20101026
  Receipt Date: 20091124
  Transmission Date: 20110411
  Serious: No
  Sender: FDA-Public Use
  Company Number: US-PFIZER INC-2009302703

PATIENT
  Sex: Female

DRUGS (4)
  1. LIPITOR [Suspect]
     Dosage: UNK
  2. LISINOPRIL [Suspect]
     Dosage: UNK
  3. LASIX [Suspect]
     Dosage: UNK
  4. GLUCOPHAGE [Suspect]
     Dosage: UNK

REACTIONS (2)
  - ALOPECIA [None]
  - GAIT DISTURBANCE [None]
